FAERS Safety Report 16646618 (Version 2)
Quarter: 2019Q3

REPORT INFORMATION
  Report Type: Spontaneous
  Country: IN (occurrence: IN)
  Receive Date: 20190730
  Receipt Date: 20190805
  Transmission Date: 20191004
  Serious: Yes (Life-Threatening, Hospitalization, Other)
  Sender: FDA-Public Use
  Company Number: IN-ACCORD-149319

PATIENT
  Age: 49 Year
  Sex: Female

DRUGS (3)
  1. FOLINIC ACID [Suspect]
     Active Substance: LEUCOVORIN
     Indication: COLON CANCER STAGE IV
     Dosage: 1 CYCLE IS GIVEN OVER 2 DAYS
  2. FLUOROURACIL. [Suspect]
     Active Substance: FLUOROURACIL
     Indication: COLON CANCER STAGE IV
     Dosage: 1 CYCLE IS GIVEN OVER 2 DAYS
  3. OXALIPLATIN. [Suspect]
     Active Substance: OXALIPLATIN
     Indication: COLON CANCER STAGE IV
     Dosage: 1 CYCLE IS GIVEN OVER 2 DAYS

REACTIONS (3)
  - Dysphagia [Recovered/Resolved]
  - Speech disorder [Recovered/Resolved]
  - Posterior reversible encephalopathy syndrome [Recovered/Resolved]
